FAERS Safety Report 5850172-7 (Version None)
Quarter: 2008Q3

REPORT INFORMATION
  Report Type: 
  Country: None (occurrence: None)
  Receive Date: 20080819
  Receipt Date: 20080819
  Transmission Date: 20090109
  Serious: Yes (Hospitalization, Other)
  Sender: FDA-Public Use
  Company Number: US-BOEHRINGER INGELHEIM GMBH, GERMANY-2007-BP-22568BP

PATIENT
  Sex: Male
  Weight: 105 kg

DRUGS (8)
  1. BIBR 1048 (DABIGATRAN ETEXILATE) (BLIND) [Suspect]
     Indication: CEREBROVASCULAR ACCIDENT PROPHYLAXIS
     Route: 048
     Dates: start: 20070731, end: 20070925
  2. BIBR 1048 (DABIGATRAN ETEXILATE) (BLIND) [Suspect]
     Indication: THROMBOSIS PROPHYLAXIS
  3. INDOCIN [Suspect]
     Indication: GOUT
     Route: 048
     Dates: start: 20080301, end: 20080416
  4. ADVIL [Suspect]
     Indication: PAIN
     Route: 048
     Dates: start: 20080301, end: 20080416
  5. MICARDIS [Suspect]
     Indication: HYPERTENSION
     Route: 048
     Dates: start: 20060601, end: 20080416
  6. ASPIRIN [Concomitant]
     Indication: PROPHYLAXIS
     Route: 048
     Dates: start: 20070912, end: 20070925
  7. ADVIL [Concomitant]
     Indication: ARTHRALGIA
     Route: 048
     Dates: start: 20070901, end: 20070925
  8. ALEVE [Concomitant]
     Indication: ARTHRALGIA
     Route: 048
     Dates: start: 20070901, end: 20070925

REACTIONS (6)
  - BARRETT'S OESOPHAGUS [None]
  - BLOOD CREATININE INCREASED [None]
  - GASTROINTESTINAL HAEMORRHAGE [None]
  - METASTATIC RENAL CELL CARCINOMA [None]
  - RENAL FAILURE ACUTE [None]
  - RENAL FAILURE CHRONIC [None]
